FAERS Safety Report 10953710 (Version 1)
Quarter: 2015Q1

REPORT INFORMATION
  Report Type: Spontaneous
  Country: US (occurrence: US)
  Receive Date: 20150325
  Receipt Date: 20150325
  Transmission Date: 20150721
  Serious: Yes (Death)
  Sender: FDA-Public Use
  Company Number: US-CIPLA LTD.-2015US02408

PATIENT

DRUGS (8)
  1. DIPHENHYDRAMINE [Suspect]
     Active Substance: DIPHENHYDRAMINE
  2. SERTRALINE [Suspect]
     Active Substance: SERTRALINE HYDROCHLORIDE
  3. QUININE [Suspect]
     Active Substance: QUININE
  4. CODEINE [Suspect]
     Active Substance: CODEINE
  5. BENZTROPINE [Suspect]
     Active Substance: BENZTROPINE
  6. COCAINE [Suspect]
     Active Substance: COCAINE
  7. HYDROXYZINE [Suspect]
     Active Substance: HYDROXYZINE\HYDROXYZINE HYDROCHLORIDE
  8. HEROIN [Suspect]
     Active Substance: DIACETYLMORPHINE

REACTIONS (1)
  - Drug abuse [Fatal]
